FAERS Safety Report 6301054-8 (Version None)
Quarter: 2009Q3

REPORT INFORMATION
  Report Type: 
  Country: None (occurrence: None)
  Receive Date: 20090807
  Receipt Date: 20090729
  Transmission Date: 20100115
  Serious: Yes (Hospitalization, Other)
  Sender: FDA-Public Use
  Company Number: GB-PFIZER INC-2008084513

PATIENT
  Age: 41 Year

DRUGS (4)
  1. DEPO-PROVERA [Suspect]
     Indication: CONTRACEPTION
     Dosage: 150 MG, 1ST INJECTION
     Route: 030
     Dates: start: 20080721, end: 20080721
  2. COZAAR [Concomitant]
  3. CRESTOR [Concomitant]
  4. GLUCOPHAGE [Concomitant]

REACTIONS (3)
  - INJECTION SITE INDURATION [None]
  - INJECTION SITE INFLAMMATION [None]
  - MUSCLE SWELLING [None]
